FAERS Safety Report 10924134 (Version 1)
Quarter: 2015Q1

REPORT INFORMATION
  Report Type: Spontaneous
  Country: US (occurrence: None)
  Receive Date: 20150316
  Receipt Date: 20150316
  Transmission Date: 20150721
  Serious: Yes (Life-Threatening, Hospitalization)
  Sender: FDA-Public Use
  Company Number: None

PATIENT
  Age: 59 Year
  Sex: Male

DRUGS (1)
  1. INDOMETHACIN. [Suspect]
     Active Substance: INDOMETHACIN
     Indication: PAIN
     Route: 048
     Dates: start: 20150221, end: 20150304

REACTIONS (3)
  - Peritonitis [None]
  - Gastric haemorrhage [None]
  - Duodenal ulcer perforation [None]

NARRATIVE: CASE EVENT DATE: 20150304
